FAERS Safety Report 8485775-7 (Version None)
Quarter: 2012Q3

REPORT INFORMATION
  Report Type: 
  Country: None (occurrence: None)
  Receive Date: 20120703
  Receipt Date: 20120629
  Transmission Date: 20120928
  Serious: Yes (Other)
  Sender: FDA-Public Use
  Company Number: US-PFIZER INC-2012156997

PATIENT
  Sex: Female
  Weight: 52.154 kg

DRUGS (2)
  1. DILANTIN-125 [Suspect]
     Route: 048
  2. DEPAKOTE [Concomitant]
     Dosage: UNK

REACTIONS (4)
  - TOOTH LOSS [None]
  - HEADACHE [None]
  - GINGIVAL SWELLING [None]
  - ORAL PAIN [None]
